FAERS Safety Report 13403468 (Version 3)
Quarter: 2017Q2

REPORT INFORMATION
  Report Type: Spontaneous
  Country: FR (occurrence: FR)
  Receive Date: 20170405
  Receipt Date: 20170606
  Transmission Date: 20170830
  Serious: Yes (Death)
  Sender: FDA-Public Use
  Company Number: FR-ROCHE-1916243

PATIENT
  Age: 75 Year
  Sex: Male

DRUGS (8)
  1. ASPEGIC [Concomitant]
     Active Substance: ASPIRIN DL-LYSINE
     Dosage: 1 SACHET AT MIDDAY
     Route: 065
  2. TAHOR [Concomitant]
     Active Substance: ATORVASTATIN CALCIUM
     Dosage: 1 TABLET IN THE EVENING
     Route: 065
  3. ZELBORAF [Concomitant]
     Active Substance: VEMURAFENIB
     Indication: ERDHEIM-CHESTER DISEASE
     Route: 065
     Dates: start: 20160529
  4. TAREG [Concomitant]
     Active Substance: VALSARTAN
     Route: 065
  5. ESOMEPRAZOLE [Concomitant]
     Active Substance: ESOMEPRAZOLE
     Dosage: 1 TABLET IN THE MORNING
     Route: 065
  6. PEGASYS [Suspect]
     Active Substance: PEGINTERFERON ALFA-2A
     Indication: ERDHEIM-CHESTER DISEASE
     Route: 058
     Dates: start: 201405, end: 201609
  7. UVEDOSE [Concomitant]
     Active Substance: CHOLECALCIFEROL
     Dosage: 1 AMPOULE EVERY 2 MONTHS
     Route: 065
  8. ANDROTARDYL [Concomitant]
     Active Substance: TESTOSTERONE
     Dosage: 1 AMPOULE EVERY 3 WEEKS
     Route: 030

REACTIONS (3)
  - Off label use [Fatal]
  - Progressive multifocal leukoencephalopathy [Fatal]
  - Product use in unapproved indication [Fatal]

NARRATIVE: CASE EVENT DATE: 2016
